FAERS Safety Report 25223103 (Version 1)
Quarter: 2025Q2

REPORT INFORMATION
  Report Type: Spontaneous
  Country: ES (occurrence: ES)
  Receive Date: 20250422
  Receipt Date: 20250422
  Transmission Date: 20250717
  Serious: Yes (Hospitalization)
  Sender: FRESENIUS KABI
  Company Number: None

PATIENT
  Age: 70 Year
  Sex: Female

DRUGS (6)
  1. FUROSEMIDE [Suspect]
     Active Substance: FUROSEMIDE
     Indication: Renal failure
     Route: 042
     Dates: start: 20250108, end: 20250116
  2. FUROSEMIDE [Concomitant]
     Active Substance: FUROSEMIDE
     Indication: Renal failure
     Route: 042
     Dates: start: 20250106, end: 20250107
  3. INVEGA 3 MG PROLONGED RELEASE TABLETS [Concomitant]
     Indication: Schizoaffective disorder
     Route: 048
     Dates: start: 202301, end: 20250105
  4. QUETIAPINE [Concomitant]
     Active Substance: QUETIAPINE
     Indication: Schizoaffective disorder
     Route: 048
     Dates: start: 20230913, end: 20250105
  5. SIMVASTATINe  (1023A) [Concomitant]
     Indication: Hyperlipidaemia
     Route: 048
     Dates: start: 20240716, end: 20250105
  6. ELIQUIS 5 MG FILM COATED TABLETS [Concomitant]
     Indication: Atrial fibrillation
     Route: 048
     Dates: start: 20230626, end: 20250105

REACTIONS (1)
  - Hypernatraemia [Recovered/Resolved]

NARRATIVE: CASE EVENT DATE: 20250112
